FAERS Safety Report 14227915 (Version 1)
Quarter: 2017Q4

REPORT INFORMATION
  Report Type: Report from Study
  Country: TN (occurrence: TN)
  Receive Date: 20171127
  Receipt Date: 20171127
  Transmission Date: 20180321
  Serious: Yes (Death)
  Sender: FDA-Public Use
  Company Number: TN-SA-2017SA230936

PATIENT
  Age: 61 Year
  Sex: Male

DRUGS (8)
  1. ATOR [Concomitant]
     Active Substance: ATORVASTATIN CALCIUM
     Route: 048
  2. GLUCOPHAGE [Concomitant]
     Active Substance: METFORMIN HYDROCHLORIDE
     Route: 048
  3. PLAVIX [Suspect]
     Active Substance: CLOPIDOGREL BISULFATE
     Indication: MYOCARDIAL INFARCTION
     Route: 048
     Dates: start: 20161218, end: 20171023
  4. HYPOTEN [Concomitant]
     Route: 048
  5. ALDACTONE [Concomitant]
     Active Substance: SPIRONOLACTONE
     Route: 048
  6. PLAVIX [Suspect]
     Active Substance: CLOPIDOGREL BISULFATE
     Indication: STENT PLACEMENT
     Route: 048
     Dates: start: 20161218, end: 20171023
  7. LASILIX [Concomitant]
     Active Substance: FUROSEMIDE
     Route: 048
  8. ASPIRIN. [Concomitant]
     Active Substance: ASPIRIN
     Route: 048

REACTIONS (3)
  - Acute pulmonary oedema [Fatal]
  - Cardiac failure [Fatal]
  - Swelling [Fatal]
